FAERS Safety Report 8934299 (Version 1)
Quarter: 2012Q4

REPORT INFORMATION
  Report Type: 
  Country: CN (occurrence: CN)
  Receive Date: 20121129
  Receipt Date: 20121129
  Transmission Date: 20130627
  Serious: Yes (Other)
  Sender: FDA-Public Use
  Company Number: CN-BAYER-2012-122992

PATIENT
  Age: 47 Year
  Sex: Female
  Weight: 50 kg

DRUGS (1)
  1. AVELOX [Suspect]
     Indication: SEPTIC SHOCK
     Dosage: 0.4 g, QD
     Route: 041
     Dates: start: 20091015, end: 20091019

REACTIONS (2)
  - Coma [Recovering/Resolving]
  - Encephalitis [Recovering/Resolving]
